FAERS Safety Report 5996661-6 (Version None)
Quarter: 2008Q4

REPORT INFORMATION
  Report Type: 
  Country: None (occurrence: None)
  Receive Date: 20081212
  Receipt Date: 20081203
  Transmission Date: 20090506
  Serious: Yes (Hospitalization, Other)
  Sender: FDA-Public Use
  Company Number: US-MERCK-0812USA02389

PATIENT
  Age: 67 Year
  Sex: Female

DRUGS (1)
  1. FOSAMAX [Suspect]
     Indication: OSTEOPOROSIS
     Route: 048
     Dates: end: 20030201

REACTIONS (5)
  - CLAVICLE FRACTURE [None]
  - DRUG INEFFECTIVE [None]
  - FEMUR FRACTURE [None]
  - HIP FRACTURE [None]
  - PELVIC FRACTURE [None]
